FAERS Safety Report 5518157-8 (Version None)
Quarter: 2007Q4

REPORT INFORMATION
  Report Type: 
  Country: None (occurrence: None)
  Receive Date: 20071115
  Receipt Date: 20071109
  Transmission Date: 20080405
  Serious: Yes (Other)
  Sender: FDA-Public Use
  Company Number: PHNU2007DE03793

PATIENT
  Age: 82 Year
  Sex: Female
  Weight: 59 kg

DRUGS (2)
  1. EXFORGE [Suspect]
     Indication: ESSENTIAL HYPERTENSION
     Dates: start: 20070521
  2. PENTAERYTHRITOL TETRANITRATE [Concomitant]
     Indication: ESSENTIAL HYPERTENSION
     Dosage: 1 DF, QD
     Dates: start: 20070521

REACTIONS (2)
  - CEREBRAL DISORDER [None]
  - HYPERTENSIVE CRISIS [None]
